FAERS Safety Report 5488654-2 (Version None)
Quarter: 2007Q4

REPORT INFORMATION
  Report Type: 
  Country: None (occurrence: None)
  Receive Date: 20071017
  Receipt Date: 20070817
  Transmission Date: 20080405
  Serious: No
  Sender: FDA-Public Use
  Company Number: A0655891A

PATIENT
  Age: 3 Year
  Sex: Male

DRUGS (1)
  1. CEFTIN [Suspect]
     Indication: LYME DISEASE
     Dosage: 5ML TWICE PER DAY
     Route: 048
     Dates: start: 20070608, end: 20070610

REACTIONS (5)
  - ABDOMINAL PAIN UPPER [None]
  - ANXIETY [None]
  - DIARRHOEA [None]
  - PHARMACEUTICAL PRODUCT COMPLAINT [None]
  - VOMITING [None]
